FAERS Safety Report 5804815-4 (Version None)
Quarter: 2008Q3

REPORT INFORMATION
  Report Type: 
  Country: None (occurrence: None)
  Receive Date: 20080709
  Receipt Date: 20080627
  Transmission Date: 20090109
  Serious: Yes (Hospitalization)
  Sender: FDA-Public Use
  Company Number: DE-ROCHE-566383

PATIENT
  Sex: Male
  Weight: 70.8 kg

DRUGS (4)
  1. PEGASYS [Suspect]
     Indication: HEPATITIS C
     Route: 058
     Dates: start: 20060908
  2. RIBAVIRIN [Suspect]
     Indication: HEPATITIS C
     Route: 048
     Dates: start: 20060908, end: 20061205
  3. RIBAVIRIN [Suspect]
     Dosage: DOSE REDUCED.
     Route: 048
     Dates: start: 20061208
  4. VX-950 [Suspect]
     Indication: HEPATITIS C
     Route: 048
     Dates: start: 20060908, end: 20061201

REACTIONS (2)
  - HAEMOLYTIC ANAEMIA [None]
  - SYNCOPE [None]
